FAERS Safety Report 7098504-9 (Version None)
Quarter: 2010Q4

REPORT INFORMATION
  Report Type: 
  Country: None (occurrence: None)
  Receive Date: 20101112
  Receipt Date: 20101013
  Transmission Date: 20110411
  Serious: Yes (Death, Other)
  Sender: FDA-Public Use
  Company Number: TR-BAYER-201042318GPV

PATIENT
  Age: 22 Year
  Sex: Male

DRUGS (11)
  1. DACARBAZINE [Suspect]
     Indication: HODGKIN'S DISEASE NODULAR SCLEROSIS STAGE UNSPECIFIED
     Dosage: 3 COURSES
  2. DACARBAZINE [Suspect]
     Dosage: 3 COURSES
  3. MECHLORETHAMINE [Suspect]
     Indication: HODGKIN'S DISEASE NODULAR SCLEROSIS STAGE UNSPECIFIED
     Dosage: 3 COURSES
  4. VINCRISTINE [Suspect]
     Indication: HODGKIN'S DISEASE NODULAR SCLEROSIS STAGE UNSPECIFIED
     Dosage: 3 COURSES
  5. PROCARBAZINE HYDROCHLORIDE [Suspect]
     Indication: HODGKIN'S DISEASE NODULAR SCLEROSIS STAGE UNSPECIFIED
     Dosage: 3 COURSES
  6. PREDNISONE [Suspect]
     Indication: HODGKIN'S DISEASE NODULAR SCLEROSIS STAGE UNSPECIFIED
     Dosage: 3 COURSES
  7. DOXORUBICIN HCL [Suspect]
     Indication: HODGKIN'S DISEASE NODULAR SCLEROSIS STAGE UNSPECIFIED
     Dosage: 3 COURSES
  8. BLEOMYCIN SULFATE [Suspect]
     Indication: HODGKIN'S DISEASE NODULAR SCLEROSIS STAGE UNSPECIFIED
     Dosage: 3 COURSES
  9. VINBLASTINE SULFATE [Suspect]
     Indication: HODGKIN'S DISEASE NODULAR SCLEROSIS STAGE UNSPECIFIED
     Dosage: 3 COURSES
  10. ADRIAMYCIN PFS [Concomitant]
     Indication: CHONDROSARCOMA
     Dosage: 60 MG/M2/DAY
  11. IFOSFAMIDE [Concomitant]
     Indication: CHONDROSARCOMA
     Dosage: 2500 MG/M2/DAY

REACTIONS (12)
  - BLOOD PARATHYROID HORMONE INCREASED [None]
  - CHONDROSARCOMA [None]
  - FAECAL INCONTINENCE [None]
  - GAIT DISTURBANCE [None]
  - HYPERCALCAEMIA [None]
  - HYPOAESTHESIA [None]
  - HYPOPHOSPHATAEMIA [None]
  - METASTASES TO LUNG [None]
  - PARATHYROID TUMOUR BENIGN [None]
  - SPINAL CORD NEOPLASM [None]
  - THYROID NEOPLASM [None]
  - URINARY INCONTINENCE [None]
